FAERS Safety Report 6982325-9 (Version None)
Quarter: 2010Q3

REPORT INFORMATION
  Report Type: 
  Country: None (occurrence: None)
  Receive Date: 20100914
  Receipt Date: 20091218
  Transmission Date: 20110219
  Serious: No
  Sender: FDA-Public Use
  Company Number: US-PFIZER INC-2009312539

PATIENT
  Sex: Female
  Weight: 39.002 kg

DRUGS (3)
  1. LYRICA [Suspect]
     Indication: CONVULSION
     Dosage: 75 MG, 1X/DAY
     Route: 048
     Dates: start: 20091124
  2. ATENOLOL [Concomitant]
     Indication: HYPERTENSION
  3. PHENYTOIN [Concomitant]

REACTIONS (3)
  - BALANCE DISORDER [None]
  - BLOOD SODIUM DECREASED [None]
  - DIPLOPIA [None]
